FAERS Safety Report 20900937 (Version 1)
Quarter: 2022Q2

REPORT INFORMATION
  Report Type: Spontaneous
  Country: US (occurrence: None)
  Receive Date: 20220601
  Receipt Date: 20220601
  Transmission Date: 20220720
  Serious: Yes (Hospitalization)
  Sender: FDA-Public Use
  Company Number: None

PATIENT
  Age: 16 Year
  Sex: Female
  Weight: 68.8 kg

DRUGS (4)
  1. METHOTREXATE [Suspect]
     Active Substance: METHOTREXATE
     Dates: end: 20220518
  2. CYTARABINE [Suspect]
     Active Substance: CYTARABINE
     Dates: end: 20220427
  3. MERCAPTOPURINE [Suspect]
     Active Substance: MERCAPTOPURINE
     Dates: end: 20220521
  4. VINCRISTINE SULFATE [Suspect]
     Active Substance: VINCRISTINE SULFATE
     Dates: end: 20220427

REACTIONS (6)
  - Febrile neutropenia [None]
  - Pancytopenia [None]
  - Mucosal inflammation [None]
  - Generalised tonic-clonic seizure [None]
  - Trismus [None]
  - Acute respiratory failure [None]

NARRATIVE: CASE EVENT DATE: 20220523
